FAERS Safety Report 10733154 (Version 1)
Quarter: 2015Q1

REPORT INFORMATION
  Report Type: Spontaneous
  Country: SE (occurrence: SE)
  Receive Date: 20150123
  Receipt Date: 20150123
  Transmission Date: 20150721
  Serious: Yes (Hospitalization)
  Sender: FDA-Public Use
  Company Number: ALCN2015SE000694

PATIENT
  Age: 45 Year
  Sex: Male

DRUGS (2)
  1. ATROPINE SULFATE. [Suspect]
     Active Substance: ATROPINE SULFATE
     Indication: IRITIS
     Dosage: 1 GTT, QHS
     Route: 047
     Dates: start: 20141031, end: 20141107
  2. ISOPTO-MAXIDEX [Concomitant]
     Dosage: UNK

REACTIONS (2)
  - Headache [Unknown]
  - Mydriasis [Unknown]

NARRATIVE: CASE EVENT DATE: 20141111
